FAERS Safety Report 20292132 (Version 1)
Quarter: 2022Q1

REPORT INFORMATION
  Report Type: Spontaneous
  Country: TW (occurrence: TW)
  Receive Date: 20220104
  Receipt Date: 20220104
  Transmission Date: 20220423
  Serious: Yes (Other)
  Sender: FDA-Public Use
  Company Number: TW-PFIZER INC-202101836648

PATIENT

DRUGS (1)
  1. LORLATINIB [Suspect]
     Active Substance: LORLATINIB
     Dosage: 100 MG, DAILY (25 MG, 4 CAPS A DAY)
     Route: 048
     Dates: start: 20201107

REACTIONS (2)
  - Cerebral thrombosis [Unknown]
  - Post procedural stroke [Unknown]

NARRATIVE: CASE EVENT DATE: 20211101
